FAERS Safety Report 8394675-2 (Version None)
Quarter: 2012Q2

REPORT INFORMATION
  Report Type: 
  Country: None (occurrence: None)
  Receive Date: 20120529
  Receipt Date: 20120529
  Transmission Date: 20120825
  Serious: No
  Sender: FDA-Public Use
  Company Number: None

PATIENT
  Age: 86 Year
  Sex: Male
  Weight: 44.4525 kg

DRUGS (1)
  1. PLAVIX [Suspect]
     Indication: CARDIAC DISORDER
     Dosage: 1 TABLET PER DAY PO
     Route: 048
     Dates: start: 20110806, end: 20120524

REACTIONS (9)
  - CHEST PAIN [None]
  - DECREASED APPETITE [None]
  - CHILLS [None]
  - WEIGHT DECREASED [None]
  - OROPHARYNGEAL PAIN [None]
  - DYSPHONIA [None]
  - RHINORRHOEA [None]
  - SPEECH DISORDER [None]
  - DYSPNOEA [None]
